FAERS Safety Report 8959872 (Version 1)
Quarter: 2012Q4

REPORT INFORMATION
  Report Type: 
  Country: US (occurrence: US)
  Receive Date: 20121211
  Receipt Date: 20121211
  Transmission Date: 20130627
  Serious: Yes (Other)
  Sender: FDA-Public Use
  Company Number: US-MYLANLABS-2012S1024889

PATIENT
  Age: 86 Year
  Sex: Female
  Weight: 78.93 kg

DRUGS (4)
  1. VALSARTAN AND HYDROCHLOROTHIAZIDE [Suspect]
     Indication: BLOOD PRESSURE INCREASED
     Dosage: 320/12.5mg
     Route: 048
     Dates: start: 20120920, end: 20121126
  2. THYROID THERAPY [Concomitant]
     Indication: THYROID DISORDER
     Route: 048
  3. MULTIVITAMIN [Concomitant]
     Route: 048
  4. ASA [Concomitant]
     Route: 048

REACTIONS (4)
  - Drug ineffective [Recovered/Resolved]
  - Cerebrovascular accident [Recovered/Resolved]
  - Blood pressure increased [Recovered/Resolved]
  - Hypoaesthesia [Recovered/Resolved]
